FAERS Safety Report 10220081 (Version 1)
Quarter: 2014Q2

REPORT INFORMATION
  Report Type: Spontaneous
  Country: GB (occurrence: GB)
  Receive Date: 20140605
  Receipt Date: 20140605
  Transmission Date: 20141212
  Serious: Yes (Other)
  Sender: FDA-Public Use
  Company Number: PHHY2014GB065975

PATIENT
  Sex: Female

DRUGS (7)
  1. CO-CODAMOL [Suspect]
     Indication: PRODUCT USED FOR UNKNOWN INDICATION
     Route: 065
     Dates: start: 199701
  2. CYMBALTA [Suspect]
     Indication: DEPRESSION
     Dosage: 120 MG, QD
     Route: 048
  3. CYMBALTA [Suspect]
     Dosage: 60 MG, QD
     Route: 048
     Dates: start: 20140312
  4. PROZAC [Suspect]
     Indication: DEPRESSION
     Dosage: 40 MG, BID
     Route: 048
     Dates: start: 199309, end: 199701
  5. YENTREVE [Suspect]
     Indication: DEPRESSION
     Dosage: 40 MG, QD
     Route: 048
  6. YENTREVE [Suspect]
     Dosage: 20 MG, QD
     Route: 048
  7. AMITRIPTYLINE [Concomitant]
     Indication: PRODUCT USED FOR UNKNOWN INDICATION
     Dosage: 1 DF, UNK
     Route: 065

REACTIONS (9)
  - Suicidal ideation [Recovered/Resolved]
  - Suicidal ideation [Recovered/Resolved]
  - Psychomotor hyperactivity [Recovered/Resolved]
  - Insomnia [Recovered/Resolved]
  - Disturbance in attention [Unknown]
  - Off label use [Recovered/Resolved]
  - Prescribed overdose [Recovered/Resolved]
  - Intentional overdose [Recovered/Resolved]
  - Drug ineffective [Unknown]
